FAERS Safety Report 10205931 (Version 2)
Quarter: 2014Q2

REPORT INFORMATION
  Report Type: Report from Study
  Country: US (occurrence: US)
  Receive Date: 20140530
  Receipt Date: 20140530
  Transmission Date: 20141212
  Serious: Yes (Other)
  Sender: FDA-Public Use
  Company Number: US-ROCHE-1380478

PATIENT
  Age: 66 Year
  Sex: Female
  Weight: 90.35 kg

DRUGS (11)
  1. ERIVEDGE [Suspect]
     Indication: BASAL CELL CARCINOMA
     Dosage: STARTED 2 YEARS AGO
     Route: 048
     Dates: start: 2012, end: 20140513
  2. PRAVASTATIN [Concomitant]
     Indication: HYPERCHOLESTEROLAEMIA
     Dosage: START DATE: 2 YEARS AGO
     Route: 048
  3. HYDROCHLOROTHIAZIDE/LOSARTAN POTASSIUM [Concomitant]
     Indication: BLOOD PRESSURE
     Dosage: START DATE: COUPLE OF YEARS. DOSE 50/12.5MG
     Route: 048
  4. LEXAPRO [Concomitant]
     Indication: DEPRESSION
     Dosage: START DATE: 9-10 YEARS AGO
     Route: 048
  5. METFORMIN HYDROCHLORIDE [Concomitant]
     Indication: DIABETES MELLITUS
     Dosage: START DATE: 10 YEARS
     Route: 048
  6. VITAMIN D3 [Concomitant]
     Indication: NUTRITIONAL SUPPLEMENTATION
     Dosage: TAKING FOR 3 YEARS. DOSE 1000UNITS
     Route: 048
  7. VITAMIN D3 [Concomitant]
     Indication: ANAEMIA
     Route: 048
  8. OMEPRAZOLE [Concomitant]
     Indication: GASTROOESOPHAGEAL REFLUX DISEASE
     Route: 048
  9. LOSARTAN [Concomitant]
     Indication: BLOOD PRESSURE
     Route: 048
  10. MELATONIN [Concomitant]
     Indication: SLEEP DISORDER
     Route: 048
  11. IBUPROFEN [Concomitant]
     Indication: PAIN
     Route: 048

REACTIONS (7)
  - Basal cell carcinoma [Not Recovered/Not Resolved]
  - Rhinorrhoea [Not Recovered/Not Resolved]
  - Diverticulitis [Not Recovered/Not Resolved]
  - Dry skin [Recovering/Resolving]
  - Muscle spasms [Recovering/Resolving]
  - Hair disorder [Recovered/Resolved]
  - Foot operation [Recovered/Resolved]
